APPROVED DRUG PRODUCT: HYDROCODONE BITARTRATE AND ACETAMINOPHEN
Active Ingredient: ACETAMINOPHEN; HYDROCODONE BITARTRATE
Strength: 325MG;10MG
Dosage Form/Route: TABLET;ORAL
Application: A040746 | Product #001 | TE Code: AA
Applicant: AMNEAL PHARMACEUTICALS NY LLC
Approved: Aug 25, 2006 | RLD: No | RS: No | Type: RX